FAERS Safety Report 10960090 (Version 1)
Quarter: 2015Q1

REPORT INFORMATION
  Report Type: Spontaneous
  Country: US (occurrence: None)
  Receive Date: 20150326
  Receipt Date: 20150326
  Transmission Date: 20150721
  Serious: Yes (Hospitalization)
  Sender: FDA-Public Use
  Company Number: None

PATIENT
  Age: 68 Year
  Sex: Male
  Weight: 87 kg

DRUGS (1)
  1. ENOXAPARIN [Suspect]
     Active Substance: ENOXAPARIN
     Indication: PULMONARY EMBOLISM
     Route: 058
     Dates: start: 20150130, end: 20150207

REACTIONS (4)
  - Injection site pain [None]
  - Intra-abdominal haematoma [None]
  - Extravasation [None]
  - Injection site swelling [None]

NARRATIVE: CASE EVENT DATE: 20150207
